FAERS Safety Report 5144029-7 (Version None)
Quarter: 2006Q4

REPORT INFORMATION
  Report Type: 
  Country: None (occurrence: None)
  Receive Date: 20061106
  Receipt Date: 20061017
  Transmission Date: 20070319
  Serious: Yes (Death, Other)
  Sender: FDA-Public Use
  Company Number: JP-BRISTOL-MYERS SQUIBB COMPANY-13546593

PATIENT
  Age: 8 Decade
  Sex: Female

DRUGS (5)
  1. VEPESID [Suspect]
     Indication: DIFFUSE LARGE B-CELL LYMPHOMA
     Route: 048
     Dates: start: 20040907, end: 20040917
  2. ENDOXAN [Concomitant]
  3. ADRIAMYCIN PFS [Concomitant]
  4. ONCOVIN [Concomitant]
  5. PREDNISOLONE [Concomitant]
     Route: 048
     Dates: start: 20040907, end: 20040917

REACTIONS (3)
  - PNEUMOTHORAX [None]
  - PYOTHORAX [None]
  - TUMOUR PERFORATION [None]
